FAERS Safety Report 8298265-1 (Version None)
Quarter: 2012Q2

REPORT INFORMATION
  Report Type: 
  Country: None (occurrence: None)
  Receive Date: 20120419
  Receipt Date: 20120217
  Transmission Date: 20120825
  Serious: Yes (Life-Threatening, Hospitalization, Disabling)
  Sender: FDA-Public Use
  Company Number: US-BRISTOL-MYERS SQUIBB COMPANY-16380008

PATIENT
  Age: 45 Year
  Sex: Male

DRUGS (1)
  1. YERVOY [Suspect]
     Indication: MALIGNANT MELANOMA
     Dosage: ALSO ON 30AUG11(340 MG) 917824-30/4/14
     Route: 042
     Dates: start: 20110809

REACTIONS (1)
  - HAEMATOCHEZIA [None]
